FAERS Safety Report 10525247 (Version 3)
Quarter: 2014Q4

REPORT INFORMATION
  Report Type: Spontaneous
  Country: FR (occurrence: FR)
  Receive Date: 20141017
  Receipt Date: 20141118
  Transmission Date: 20150528
  Serious: Yes (Death, Hospitalization, Other)
  Sender: FDA-Public Use
  Company Number: FR-BRISTOL-MYERS SQUIBB COMPANY-21502323

PATIENT
  Age: 82 Year
  Sex: Female

DRUGS (7)
  1. SERESTA [Concomitant]
     Active Substance: OXAZEPAM
  2. LASILIX [Concomitant]
     Active Substance: FUROSEMIDE
  3. IMOVANE [Concomitant]
     Active Substance: ZOPICLONE
  4. ABILIFY [Suspect]
     Active Substance: ARIPIPRAZOLE
     Route: 048
     Dates: start: 20140911
  5. DIFFU-K [Concomitant]
     Active Substance: POTASSIUM CHLORIDE
  6. LOVENOX [Concomitant]
     Active Substance: ENOXAPARIN SODIUM
  7. CYMBALTA [Concomitant]
     Active Substance: DULOXETINE HYDROCHLORIDE

REACTIONS (2)
  - Status epilepticus [Fatal]
  - Neuroleptic malignant syndrome [Fatal]

NARRATIVE: CASE EVENT DATE: 20140923
